FAERS Safety Report 10861935 (Version 1)
Quarter: 2015Q1

REPORT INFORMATION
  Report Type: Report from Study
  Country: CA (occurrence: CA)
  Receive Date: 20150224
  Receipt Date: 20150224
  Transmission Date: 20150721
  Serious: Yes (Death, Other)
  Sender: FDA-Public Use
  Company Number: CA-INCYTE CORPORATION-2012IN001915

PATIENT
  Sex: Male

DRUGS (21)
  1. JAKAFI [Suspect]
     Active Substance: RUXOLITINIB
     Dosage: 10 MG, QD
     Route: 048
  2. JAKAFI [Suspect]
     Active Substance: RUXOLITINIB
     Dosage: 15 MG, BID
     Route: 048
  3. COUMADINE [Concomitant]
     Active Substance: WARFARIN SODIUM
     Dosage: 2 MG, QD
     Route: 065
  4. JAKAFI [Suspect]
     Active Substance: RUXOLITINIB
     Dosage: 15 MG, BID
     Route: 048
     Dates: start: 20120928, end: 20121120
  5. JAKAFI [Suspect]
     Active Substance: RUXOLITINIB
     Dosage: 5 MG, BID
     Route: 048
     Dates: end: 20130505
  6. JAKAFI [Suspect]
     Active Substance: RUXOLITINIB
     Dosage: 5 MG, BID
     Route: 048
     Dates: start: 20130514
  7. BISOPROLOL [Concomitant]
     Active Substance: BISOPROLOL
     Indication: PRODUCT USED FOR UNKNOWN INDICATION
     Route: 065
  8. JAKAFI [Suspect]
     Active Substance: RUXOLITINIB
     Dosage: 5 MG, QHS
     Route: 048
  9. COUMADINE [Concomitant]
     Active Substance: WARFARIN SODIUM
     Dosage: 2 MG, QD
  10. INHIBACE PLUS [Concomitant]
     Indication: PRODUCT USED FOR UNKNOWN INDICATION
     Route: 065
  11. JAKAFI [Suspect]
     Active Substance: RUXOLITINIB
     Dosage: 5 MG, BID
     Route: 048
  12. COUMADINE [Concomitant]
     Active Substance: WARFARIN SODIUM
     Indication: PRODUCT USED FOR UNKNOWN INDICATION
     Dosage: UNK
  13. BISOPROLOL [Concomitant]
     Active Substance: BISOPROLOL
     Route: 065
  14. COUMADINE [Concomitant]
     Active Substance: WARFARIN SODIUM
     Dosage: 4 MG, QD
  15. COUMADINE [Concomitant]
     Active Substance: WARFARIN SODIUM
     Route: 065
  16. ELIQUIS [Concomitant]
     Active Substance: APIXABAN
     Indication: PRODUCT USED FOR UNKNOWN INDICATION
     Route: 065
  17. COUMADINE [Concomitant]
     Active Substance: WARFARIN SODIUM
     Dosage: 4 MG, QD
     Route: 065
  18. JAKAFI [Suspect]
     Active Substance: RUXOLITINIB
     Indication: MYELOFIBROSIS
     Dosage: 20 MG, BID
     Route: 048
  19. JAKAFI [Suspect]
     Active Substance: RUXOLITINIB
     Dosage: 15 MG, (10 MG QAM AND 5 MG QHS)
     Route: 048
  20. JAKAFI [Suspect]
     Active Substance: RUXOLITINIB
     Dosage: 10 MG, BID
     Route: 048
  21. APO-FUROSEMIDE [Concomitant]
     Indication: PRODUCT USED FOR UNKNOWN INDICATION
     Dosage: UNK
     Route: 065

REACTIONS (7)
  - Death [Fatal]
  - Somnolence [Not Recovered/Not Resolved]
  - Flatulence [Unknown]
  - White blood cell count decreased [Recovering/Resolving]
  - Increased appetite [Not Recovered/Not Resolved]
  - Epistaxis [Unknown]
  - Platelet count decreased [Recovering/Resolving]
